FAERS Safety Report 4950267-6 (Version None)
Quarter: 2006Q1

REPORT INFORMATION
  Report Type: 
  Country: None (occurrence: None)
  Receive Date: 20060316
  Receipt Date: 20060307
  Transmission Date: 20060701
  Serious: Yes (Hospitalization)
  Sender: FDA-Public Use
  Company Number: 2006-02-1665

PATIENT
  Age: 38 Year
  Sex: Female

DRUGS (2)
  1. INTERFERON ALFA-2B INJECTABLE [Suspect]
     Indication: HEPATITIS C
  2. RIBAVIRIN [Suspect]
     Indication: HEPATITIS C

REACTIONS (1)
  - VOGT-KOYANAGI-HARADA SYNDROME [None]
